FAERS Safety Report 23663050 (Version 1)
Quarter: 2024Q1

REPORT INFORMATION
  Report Type: Other
  Country: JP (occurrence: None)
  Receive Date: 20240322
  Receipt Date: 20240322
  Transmission Date: 20240410
  Serious: Yes (Death, Other)
  Sender: FDA-Public Use
  Company Number: JP-ROCHE-3528839

PATIENT

DRUGS (7)
  1. RITUXIMAB [Suspect]
     Active Substance: RITUXIMAB
     Indication: Systemic sclerosis pulmonary
     Route: 065
  2. MYCOPHENOLATE MOFETIL [Suspect]
     Active Substance: MYCOPHENOLATE MOFETIL
     Indication: Systemic sclerosis pulmonary
     Route: 065
  3. TOCILIZUMAB [Suspect]
     Active Substance: TOCILIZUMAB
     Indication: Systemic sclerosis pulmonary
     Route: 065
  4. AZATHIOPRINE [Suspect]
     Active Substance: AZATHIOPRINE
     Indication: Systemic sclerosis pulmonary
     Route: 065
  5. TACROLIMUS [Suspect]
     Active Substance: TACROLIMUS
     Indication: Systemic sclerosis pulmonary
     Route: 065
  6. CYCLOPHOSPHAMIDE [Suspect]
     Active Substance: CYCLOPHOSPHAMIDE
     Indication: Systemic sclerosis pulmonary
     Route: 065
  7. NINTEDANIB [Suspect]
     Active Substance: NINTEDANIB
     Indication: Systemic sclerosis pulmonary
     Dosage: 150 MG TWICE DAILY (300 MG/DAY) IN 76 PATIENTS AND 100 MG TWICE DAILY (200 MG/DAY) IN 61. AMONG THE
     Route: 048

REACTIONS (36)
  - Bronchopulmonary aspergillosis [Fatal]
  - Pyrexia [Fatal]
  - Cardiac failure [Fatal]
  - Renal failure [Fatal]
  - Off label use [Fatal]
  - Hepatic function abnormal [Recovered/Resolved]
  - Nephrotic syndrome [Recovered/Resolved]
  - Interstitial lung disease [Unknown]
  - Pulmonary hypertension [Unknown]
  - Pulmonary arterial hypertension [Unknown]
  - Decreased appetite [Recovered/Resolved]
  - Drug-induced liver injury [Recovered/Resolved]
  - Hepatic enzyme increased [Recovered/Resolved]
  - Osteomyelitis [Unknown]
  - Subarachnoid haemorrhage [Unknown]
  - Left ventricular failure [Unknown]
  - Respiratory disorder [Unknown]
  - Large intestine polyp [Unknown]
  - Cholangitis [Unknown]
  - Fall [Unknown]
  - Femoral neck fracture [Unknown]
  - Contusion [Unknown]
  - Diarrhoea [Unknown]
  - Nausea [Unknown]
  - Vomiting [Unknown]
  - Abdominal pain [Unknown]
  - Abdominal discomfort [Unknown]
  - Gamma-glutamyltransferase increased [Unknown]
  - Constipation [Unknown]
  - Faeces soft [Unknown]
  - Rash [Unknown]
  - Gastrointestinal disorder [Unknown]
  - Haematochezia [Unknown]
  - Liver function test increased [Unknown]
  - C-reactive protein increased [Unknown]
  - Skin ulcer [Unknown]
